FAERS Safety Report 8015679 (Version 2)
Quarter: 2016Q1

REPORT INFORMATION
  Report Type: Report from Study
  Country: DE (occurrence: DE)
  Receive Date: 20110629
  Receipt Date: 20160219
  Transmission Date: 20160526
  Serious: Yes (Hospitalization)
  Sender: FDA-Public Use
  Company Number: PHHO2011DE10680

PATIENT
  Age: 55 Year
  Sex: Female
  Weight: 49 kg

DRUGS (1)
  1. CGS 20267 [Suspect]
     Active Substance: LETROZOLE
     Indication: BREAST CANCER
     Dosage: 2.5 MG / DAY
     Route: 048
     Dates: start: 20100604

REACTIONS (1)
  - Depression [Unknown]

NARRATIVE: CASE EVENT DATE: 20100606
